FAERS Safety Report 9713853 (Version 1)
Quarter: 2013Q4

REPORT INFORMATION
  Report Type: Spontaneous
  Country: US (occurrence: US)
  Receive Date: 20131126
  Receipt Date: 20131126
  Transmission Date: 20140711
  Serious: Yes (Other)
  Sender: FDA-Public Use
  Company Number: US-GLAXOSMITHKLINE-A1051150A

PATIENT
  Age: 63 Year
  Sex: Female
  Weight: 59.5 kg

DRUGS (2)
  1. IMITREX [Suspect]
     Indication: HEADACHE
  2. UNKNOWN MEDICATION [Concomitant]

REACTIONS (2)
  - Immobile [Recovered/Resolved]
  - Loss of consciousness [Recovered/Resolved]
